FAERS Safety Report 5571522-5 (Version None)
Quarter: 2007Q4

REPORT INFORMATION
  Report Type: 
  Country: None (occurrence: None)
  Receive Date: 20071221
  Receipt Date: 20071220
  Transmission Date: 20080405
  Serious: Yes (Life-Threatening)
  Sender: FDA-Public Use
  Company Number: JP-JNJFOC-20071104400

PATIENT
  Sex: Male
  Weight: 52 kg

DRUGS (9)
  1. PALIPERIDONE [Suspect]
     Route: 048
  2. PALIPERIDONE [Suspect]
     Indication: SCHIZOPHRENIA
     Route: 048
  3. MAGLAX [Concomitant]
     Indication: CONSTIPATION
     Route: 048
  4. CONIEL [Concomitant]
     Indication: HYPERTENSION
     Route: 048
  5. ENALAPRIL MALEATE [Concomitant]
     Indication: HYPERTENSION
     Route: 048
  6. EURODIN [Concomitant]
     Indication: SCHIZOPHRENIA
     Route: 048
  7. CYANOCOBALAMIN [Concomitant]
     Indication: INTERVERTEBRAL DISC PROTRUSION
     Route: 048
  8. ROHYPNOL [Concomitant]
     Indication: SCHIZOPHRENIA
     Route: 048
  9. LENDORMIN [Concomitant]
     Indication: SCHIZOPHRENIA
     Route: 048

REACTIONS (1)
  - SUICIDE ATTEMPT [None]
